FAERS Safety Report 15075010 (Version 1)
Quarter: 2018Q2

REPORT INFORMATION
  Report Type: Report from Study
  Country: US (occurrence: US)
  Receive Date: 20180627
  Receipt Date: 20180627
  Transmission Date: 20180711
  Serious: Yes (Hospitalization)
  Sender: FDA-Public Use
  Company Number: US-SAOL THERAPEUTICS-2017SAO01414

PATIENT
  Age: 30 Year
  Sex: Female

DRUGS (18)
  1. COMPOUNDED BACLOFEN [Suspect]
     Active Substance: BACLOFEN
     Dosage: 841.8 ?G, \DAY MAX
     Route: 037
     Dates: start: 20170703, end: 20170827
  2. DILAUDID [Suspect]
     Active Substance: HYDROMORPHONE HYDROCHLORIDE
     Dosage: 0.7056 MG, \DAY MAX
     Route: 037
     Dates: start: 20170827
  3. BUPIVACAINE. [Suspect]
     Active Substance: BUPIVACAINE
     Dosage: 10.190 MG, \DAY
     Route: 037
     Dates: start: 20170703, end: 201708
  4. BUPIVACAINE. [Suspect]
     Active Substance: BUPIVACAINE
     Dosage: 8.467 MG, \DAY MAX
     Route: 037
     Dates: start: 20170827
  5. COMPOUNDED BACLOFEN [Suspect]
     Active Substance: BACLOFEN
     Dosage: 399.7 ?G, \DAY
     Route: 037
     Dates: start: 20170827
  6. DILAUDID [Suspect]
     Active Substance: HYDROMORPHONE HYDROCHLORIDE
     Dosage: 0.8492 MG, \DAY
     Route: 037
     Dates: start: 20170703, end: 201708
  7. DILAUDID [Suspect]
     Active Substance: HYDROMORPHONE HYDROCHLORIDE
     Dosage: 1.0523 MG, \DAY MAX
     Route: 037
     Dates: start: 20170703, end: 201708
  8. BUPIVACAINE. [Suspect]
     Active Substance: BUPIVACAINE
     Dosage: 15.489 MG, \DAY MAX
     Route: 037
     Dates: end: 20170703
  9. COMPOUNDED BACLOFEN [Suspect]
     Active Substance: BACLOFEN
     Dosage: 679.3 ?G, \DAY
     Route: 037
     Dates: start: 20170703, end: 20170827
  10. COMPOUNDED BACLOFEN [Suspect]
     Active Substance: BACLOFEN
     Dosage: 799.3 ?G, \DAY
     Route: 037
     Dates: end: 20170703
  11. BUPIVACAINE. [Suspect]
     Active Substance: BUPIVACAINE
     Dosage: 5.995 MG, \DAY
     Route: 037
     Dates: start: 20170827
  12. COMPOUNDED BACLOFEN [Suspect]
     Active Substance: BACLOFEN
     Dosage: 564.5 ?G, \DAY MAX
     Route: 037
     Dates: start: 20170827
  13. DILAUDID [Suspect]
     Active Substance: HYDROMORPHONE HYDROCHLORIDE
     Dosage: 0.9991 MG, \DAY
     Route: 037
     Dates: end: 20170703
  14. BUPIVACAINE. [Suspect]
     Active Substance: BUPIVACAINE
     Dosage: 11.990 MG, \DAY
     Route: 037
     Dates: end: 20170703
  15. COMPOUNDED BACLOFEN [Suspect]
     Active Substance: BACLOFEN
     Dosage: 1032.6 ?G, \DAY MAX
     Route: 037
     Dates: end: 20170703
  16. DILAUDID [Suspect]
     Active Substance: HYDROMORPHONE HYDROCHLORIDE
     Dosage: 1.2907 MG, \DAY MAX
     Route: 037
     Dates: end: 20170703
  17. DILAUDID [Suspect]
     Active Substance: HYDROMORPHONE HYDROCHLORIDE
     Dosage: 0.4996 MG, \DAY
     Route: 037
     Dates: start: 20170827
  18. BUPIVACAINE. [Suspect]
     Active Substance: BUPIVACAINE
     Dosage: 12.627 MG, \DAY MAX
     Route: 037
     Dates: start: 20170703, end: 201708

REACTIONS (5)
  - Device infusion issue [Recovered/Resolved]
  - Loss of consciousness [Recovered/Resolved]
  - Device malfunction [Recovered/Resolved]
  - Device kink [Recovered/Resolved]
  - Mental status changes [Recovered/Resolved]

NARRATIVE: CASE EVENT DATE: 20170827
